FAERS Safety Report 7473582-3 (Version None)
Quarter: 2011Q2

REPORT INFORMATION
  Report Type: 
  Country: None (occurrence: None)
  Receive Date: 20110503
  Receipt Date: 20110418
  Transmission Date: 20111010
  Serious: Yes (Other)
  Sender: FDA-Public Use
  Company Number: IPC201104-000725

PATIENT

DRUGS (2)
  1. METOCLOPRAMIDE HYDROCHLORIDE [Suspect]
  2. REGLAN [Suspect]

REACTIONS (10)
  - SUICIDAL IDEATION [None]
  - PARKINSONISM [None]
  - VISUAL IMPAIRMENT [None]
  - DEPRESSION [None]
  - DYSTONIA [None]
  - NEUROPATHY PERIPHERAL [None]
  - TARDIVE DYSKINESIA [None]
  - NERVOUS SYSTEM DISORDER [None]
  - AKATHISIA [None]
  - RESTLESS LEGS SYNDROME [None]
